FAERS Safety Report 16911057 (Version 2)
Quarter: 2019Q4

REPORT INFORMATION
  Report Type: Report from Study
  Country: None (occurrence: BG)
  Receive Date: 20191012
  Receipt Date: 20191016
  Transmission Date: 20200122
  Serious: Yes (Death, Hospitalization, Other)
  Sender: FDA-Public Use
  Company Number: BG-ABBVIE-19K-022-2896036-00

PATIENT
  Age: 65 Year
  Sex: Male

DRUGS (3)
  1. DUODOPA [Suspect]
     Active Substance: CARBIDOPA\LEVODOPA
     Indication: PARKINSON^S DISEASE
     Dosage: MD- 9.5 ML??CR- 2.9 ML/H??EX- 1.0 ML
     Route: 050
     Dates: start: 20150211, end: 20190819
  2. PK MERZ [Concomitant]
     Active Substance: AMANTADINE SULFATE
     Indication: PRODUCT USED FOR UNKNOWN INDICATION
  3. DUODOPA [Suspect]
     Active Substance: CARBIDOPA\LEVODOPA
     Route: 050
     Dates: start: 201910

REACTIONS (10)
  - Renal failure [Fatal]
  - Respiratory failure [Fatal]
  - Blood creatinine increased [Unknown]
  - Hallucination [Unknown]
  - Bradycardia [Unknown]
  - Vitamin B12 decreased [Unknown]
  - Polyneuropathy [Not Recovered/Not Resolved]
  - General physical health deterioration [Unknown]
  - Cerebrovascular accident [Unknown]
  - Blood folate decreased [Unknown]

NARRATIVE: CASE EVENT DATE: 201908
